FAERS Safety Report 6993702-4 (Version None)
Quarter: 2010Q3

REPORT INFORMATION
  Report Type: 
  Country: None (occurrence: None)
  Receive Date: 20100917
  Receipt Date: 20080306
  Transmission Date: 20110219
  Serious: Yes (Other)
  Sender: FDA-Public Use
  Company Number: US-ASTRAZENECA-2007UW27695

PATIENT
  Age: 9629 Day
  Sex: Female

DRUGS (11)
  1. SEROQUEL [Suspect]
     Indication: ANXIETY
     Dosage: 25 MG, ONE OR TWO TABLET AT BED TIME AS NEEDE
     Route: 048
     Dates: start: 20060301
  2. SEROQUEL [Suspect]
     Indication: DEPRESSION
     Dosage: 25 MG, ONE OR TWO TABLET AT BED TIME AS NEEDE
     Route: 048
     Dates: start: 20060301
  3. SEROQUEL [Suspect]
     Route: 048
     Dates: start: 20000401, end: 20071201
  4. SEROQUEL [Suspect]
     Route: 048
     Dates: start: 20000401, end: 20071201
  5. DEPAKOTE ER [Concomitant]
     Route: 048
     Dates: start: 20070326
  6. CLONAZEPAM [Concomitant]
     Dosage: 25 MG AT BED TIME, 12.5 MG EVERY DAY AND AT BEDTIME
     Dates: start: 20060301
  7. TRAMADOL HCL [Concomitant]
     Indication: PAIN
     Dosage: ONE TABLET FOUR TIMES DAILY AS NEEDED
     Route: 048
     Dates: start: 20060115
  8. GABAPENTIN [Concomitant]
     Dates: start: 20070417
  9. LORATADINE [Concomitant]
     Dates: start: 20070418
  10. TOPAMAX [Concomitant]
     Dosage: 100-125 MG
     Dates: start: 20060301
  11. SPRINTEC [Concomitant]
     Dosage: ONE TABLET EVERY DAY
     Dates: start: 20060115

REACTIONS (4)
  - DIABETES MELLITUS [None]
  - DIABETES MELLITUS INADEQUATE CONTROL [None]
  - HYPERGLYCAEMIA [None]
  - TYPE 2 DIABETES MELLITUS [None]
